FAERS Safety Report 23983235 (Version 3)
Quarter: 2024Q3

REPORT INFORMATION
  Report Type: Spontaneous
  Country: US (occurrence: US)
  Receive Date: 20240617
  Receipt Date: 20240726
  Transmission Date: 20241017
  Serious: No
  Sender: TAIHO ONCOLOGY INC
  Company Number: US-TAIHOP-2024-005602

PATIENT
  Sex: Male

DRUGS (3)
  1. LYTGOBI [Suspect]
     Active Substance: FUTIBATINIB
     Indication: Cholangiocarcinoma
     Dosage: FREQUENCY UNKNOWN
     Route: 048
     Dates: start: 20240319
  2. LYTGOBI [Suspect]
     Active Substance: FUTIBATINIB
     Dosage: FREQUENCY UNKNOWN
     Route: 048
  3. LYTGOBI [Suspect]
     Active Substance: FUTIBATINIB
     Dosage: FREQUENCY UNKNOWN
     Route: 048

REACTIONS (1)
  - Hypercalcaemia [Not Recovered/Not Resolved]
